FAERS Safety Report 16234354 (Version 1)
Quarter: 2019Q2

REPORT INFORMATION
  Report Type: Spontaneous
  Country: CH (occurrence: CH)
  Receive Date: 20190424
  Receipt Date: 20190424
  Transmission Date: 20190711
  Serious: Yes (Disabling)
  Sender: FDA-Public Use
  Company Number: PHHY2019CH090277

PATIENT
  Sex: Male

DRUGS (2)
  1. AZOPT [Suspect]
     Active Substance: BRINZOLAMIDE
     Indication: GLAUCOMA
     Dosage: 2 DF, QD
     Route: 065
     Dates: start: 20190315
  2. DUOTRAV [Concomitant]
     Active Substance: TIMOLOL MALEATE\TRAVOPROST
     Indication: GLAUCOMA
     Dosage: 2 DF, QD
     Route: 065
     Dates: start: 20171222

REACTIONS (3)
  - Eye pain [Recovered/Resolved]
  - Vomiting [Recovered/Resolved]
  - Cluster headache [Recovered/Resolved]

NARRATIVE: CASE EVENT DATE: 20190315
